FAERS Safety Report 21480804 (Version 3)
Quarter: 2022Q4

REPORT INFORMATION
  Report Type: Report from Study
  Country: US (occurrence: US)
  Receive Date: 20221019
  Receipt Date: 20221025
  Transmission Date: 20230113
  Serious: Yes (Other)
  Sender: FDA-Public Use
  Company Number: US-NOVARTISPH-NVSC2022US235901

PATIENT
  Sex: Female

DRUGS (1)
  1. MAYZENT [Suspect]
     Active Substance: SIPONIMOD
     Indication: Product used for unknown indication
     Dosage: UNK
     Route: 065
     Dates: start: 20221015

REACTIONS (7)
  - Loss of consciousness [Unknown]
  - Condition aggravated [Unknown]
  - Movement disorder [Unknown]
  - Fatigue [Unknown]
  - Burning sensation [Unknown]
  - Fall [Unknown]
  - Musculoskeletal stiffness [Unknown]
